FAERS Safety Report 17396857 (Version 2)
Quarter: 2020Q1

REPORT INFORMATION
  Report Type: Spontaneous
  Country: SI (occurrence: SI)
  Receive Date: 20200210
  Receipt Date: 20200221
  Transmission Date: 20200409
  Serious: Yes (Other)
  Sender: FDA-Public Use
  Company Number: SI-ALEXION PHARMACEUTICALS INC.-A202001427

PATIENT
  Age: 6 Year
  Sex: Male

DRUGS (1)
  1. SOLIRIS [Suspect]
     Active Substance: ECULIZUMAB
     Indication: ATYPICAL HAEMOLYTIC URAEMIC SYNDROME
     Dosage: UNK, TWICE MONTHLY
     Route: 065

REACTIONS (4)
  - Thrombotic microangiopathy [Unknown]
  - Glomerulosclerosis [Unknown]
  - Anuria [Unknown]
  - Renal impairment [Unknown]
